FAERS Safety Report 8912977 (Version 1)
Quarter: 2012Q4

REPORT INFORMATION
  Report Type: 
  Country: HR (occurrence: HR)
  Receive Date: 20121116
  Receipt Date: 20121116
  Transmission Date: 20130627
  Serious: Yes (Life-Threatening, Hospitalization)
  Sender: FDA-Public Use
  Company Number: HR-BRISTOL-MYERS SQUIBB COMPANY-17111766

PATIENT
  Age: 75 Year
  Sex: Male
  Weight: 80 kg

DRUGS (1)
  1. PACLITAXEL [Suspect]
     Indication: LUNG ADENOCARCINOMA
     Route: 042
     Dates: start: 20120905, end: 20120905

REACTIONS (4)
  - Lung infiltration [Unknown]
  - Haemoptysis [Unknown]
  - Dyspnoea [Unknown]
  - Pyrexia [Unknown]
